FAERS Safety Report 16670308 (Version 4)
Quarter: 2019Q3

REPORT INFORMATION
  Report Type: Spontaneous
  Country: US (occurrence: US)
  Receive Date: 20190805
  Receipt Date: 20190916
  Transmission Date: 20191004
  Serious: Yes (Hospitalization, Other)
  Sender: FDA-Public Use
  Company Number: US-ACTELION-A-NJ2019-193944

PATIENT
  Age: 74 Year
  Sex: Female

DRUGS (6)
  1. AMBRISENTAN [Suspect]
     Active Substance: AMBRISENTAN
     Indication: PRODUCT USED FOR UNKNOWN INDICATION
     Dosage: 10 MG, QD
     Route: 048
     Dates: start: 20170626
  2. WARFARIN [Concomitant]
     Active Substance: WARFARIN
  3. UPTRAVI [Suspect]
     Active Substance: SELEXIPAG
     Dosage: UNK
     Route: 048
  4. REVATIO [Concomitant]
     Active Substance: SILDENAFIL CITRATE
  5. UPTRAVI [Suspect]
     Active Substance: SELEXIPAG
     Dosage: 2600 MCG, BID
     Route: 048
  6. UPTRAVI [Suspect]
     Active Substance: SELEXIPAG
     Indication: PRODUCT USED FOR UNKNOWN INDICATION
     Dosage: 2400 MCG
     Route: 048

REACTIONS (19)
  - Abdominal discomfort [Not Recovered/Not Resolved]
  - Depression [Not Recovered/Not Resolved]
  - Pain [Not Recovered/Not Resolved]
  - Chills [Not Recovered/Not Resolved]
  - Discomfort [Not Recovered/Not Resolved]
  - Influenza [Not Recovered/Not Resolved]
  - Headache [Not Recovered/Not Resolved]
  - Cerebrovascular accident [Not Recovered/Not Resolved]
  - Overdose [Unknown]
  - Weight decreased [Unknown]
  - Pyrexia [Not Recovered/Not Resolved]
  - Memory impairment [Not Recovered/Not Resolved]
  - Fatigue [Not Recovered/Not Resolved]
  - Myalgia [Not Recovered/Not Resolved]
  - Mood altered [Not Recovered/Not Resolved]
  - Nausea [Not Recovered/Not Resolved]
  - Apathy [Not Recovered/Not Resolved]
  - Influenza like illness [Not Recovered/Not Resolved]
  - Pain in jaw [Not Recovered/Not Resolved]
